FAERS Safety Report 23857648 (Version 1)
Quarter: 2024Q2

REPORT INFORMATION
  Report Type: Spontaneous
  Country: FR (occurrence: FR)
  Receive Date: 20240515
  Receipt Date: 20240515
  Transmission Date: 20240715
  Serious: Yes (Hospitalization, Other)
  Sender: FDA-Public Use
  Company Number: None

PATIENT
  Age: 66 Year
  Sex: Female

DRUGS (24)
  1. DOXORUBICIN [Suspect]
     Active Substance: DOXORUBICIN
     Indication: Follicular lymphoma stage III
     Dosage: 1 DOSAGE FORM, EVERY 21 DAYS
     Route: 042
     Dates: start: 20240405, end: 20240405
  2. CYCLOPHOSPHAMIDE [Suspect]
     Active Substance: CYCLOPHOSPHAMIDE
     Indication: Follicular lymphoma stage III
     Dosage: 1 DOSAGE FORM, EVERY 21 DAYS
     Route: 042
     Dates: start: 20240405, end: 20240405
  3. RITUXIMAB [Suspect]
     Active Substance: RITUXIMAB
     Indication: Follicular lymphoma stage III
     Dosage: 1 DOSAGE FORM, EVERY 21 DAYS
     Route: 042
     Dates: start: 20240405, end: 20240405
  4. VINCRISTINE SULFATE [Suspect]
     Active Substance: VINCRISTINE SULFATE
     Indication: Follicular lymphoma stage III
     Dosage: 1 DOSAGE FORM, EVERY 21 DAYS
     Route: 042
     Dates: start: 20240405, end: 20240405
  5. PREDNISONE [Suspect]
     Active Substance: PREDNISONE
     Indication: Follicular lymphoma stage III
     Dosage: 1 DOSAGE FORM, EVERY 21 DAYS
     Route: 042
     Dates: start: 20240405, end: 20240405
  6. PRIMPERAN [Concomitant]
     Active Substance: METOCLOPRAMIDE HYDROCHLORIDE
     Indication: Nausea
     Dosage: 3 DOSAGE FORM, EVERY DAY (1 TABLET MORNING, MIDDAY AND EVENING IF NAUSEA) SCORE TABLET
     Route: 048
  7. PREDNISONE [Concomitant]
     Active Substance: PREDNISONE
     Indication: Product used for unknown indication
     Dosage: 60 MG, EVERY DAY
     Route: 048
  8. ENTECAVIR [Concomitant]
     Active Substance: ENTECAVIR
     Indication: Antiviral prophylaxis
     Dosage: 1 DOSAGE FORM, EVERY 3 DAYS (1 TAB IN THE EVENING EVERY 3 DAYS)
     Route: 048
  9. FUROSEMIDE [Concomitant]
     Active Substance: FUROSEMIDE
     Indication: Product used for unknown indication
     Dosage: 1 DOSAGE FORM, EVERY DAY (IN THE MORNING)
     Route: 048
  10. FOLIC ACID [Concomitant]
     Active Substance: FOLIC ACID
     Indication: Product used for unknown indication
     Dosage: 1 DOSAGE FORM, EVERY DAY (1 TAB PER DAY (5 MG))
     Route: 048
  11. LEVOTHYROXINE [Concomitant]
     Active Substance: LEVOTHYROXINE\LEVOTHYROXINE SODIUM
     Indication: Hypothyroidism
     Dosage: 1.5 DOSAGE FORM, EVERY DAY (1.5 TAB PER DAY
     Route: 048
  12. FEBUXOSTAT [Concomitant]
     Active Substance: FEBUXOSTAT
     Indication: Product used for unknown indication
     Dosage: 1 DAOSAGE FORM, EVERY DAY (1 TABLET AT MIDDAY (80MG))
     Route: 048
  13. PRAVASTATIN SODIUM [Concomitant]
     Active Substance: PRAVASTATIN SODIUM
     Indication: Dyslipidaemia
     Dosage: 1 DOSAGE FORM, EVERY DAY (1 TABLET IN THE EVENING)
     Route: 048
  14. COTRIMOXAZOLE [Concomitant]
     Active Substance: SULFAMETHOXAZOLE\TRIMETHOPRIM
     Indication: Antibiotic prophylaxis
     Dosage: 1 DOSAGE FORM, EVERY DAY (1 TAB PER DAY)
     Route: 048
  15. BISOPROLOL FUMARATE [Concomitant]
     Active Substance: BISOPROLOL FUMARATE
     Indication: Product used for unknown indication
     Dosage: 2 DOSAGE FORM, EVERY DAY (1 TABLET MORNING AND EVENING (1,25MG))
     Route: 048
  16. LANSOPRAZOLE [Concomitant]
     Active Substance: LANSOPRAZOLE
     Indication: Product used for unknown indication
     Dosage: 1 DOSAGE FORM, EVERY DAY (1 TABLET IN THE EVENING (15 MG))
     Route: 048
  17. FUNGIZONE [Concomitant]
     Active Substance: AMPHOTERICIN B
     Indication: Mucosal inflammation
     Dosage: 3 DOSAGE FORM, EVERY DAY (1 MOUTHWASH AFTER EACH MEAL 3 TIMES A DAY)
     Route: 048
  18. SPAGULAX [Concomitant]
     Active Substance: HERBALS\PLANTAGO OVATA SEED
     Indication: Constipation
     Dosage: 2 DOSAGE FORM, EVERY DAY (1 MORNING AND EVENING IF NEEDED)
     Route: 048
  19. VALACYCLOVIR HYDROCHLORIDE [Concomitant]
     Active Substance: VALACYCLOVIR HYDROCHLORIDE
     Indication: Antiviral prophylaxis
     Dosage: 1 DOSAGE FORM, EVERY DAY (1 TAB PER DAY)
     Route: 048
  20. SODIUM BICARBONATE [Concomitant]
     Active Substance: SODIUM BICARBONATE
     Indication: Mucosal inflammation
     Dosage: 3 DOSAGE FORM, EVERY DAY (MOUTHWASH AFTER EACH MEAL 3 TIMES A DAY)
     Route: 048
  21. ACETAMINOPHEN [Concomitant]
     Active Substance: ACETAMINOPHEN
     Indication: Pain
     Dosage: 2 DOSAGE FORM, EVERY DAY (2 TABS IF PAIN)
     Route: 048
  22. FILGRASTIM [Concomitant]
     Active Substance: FILGRASTIM
     Indication: Neutropenia
     Dosage: 1 DOSAGE FORM, 30 MU/0,5 ML, PREFILLED SYRINGE
     Route: 058
  23. MOVICOL [Concomitant]
     Active Substance: POLYETHYLENE GLYCOL 3350\POTASSIUM CHLORIDE\SODIUM BICARBONATE\SODIUM CHLORIDE
     Indication: Constipation
     Dosage: 2 DOSAGE FORM, EVERY DAY (2 SACHETS IF NEEDED)
     Route: 048
  24. SEVELAMER CARBONATE [Concomitant]
     Active Substance: SEVELAMER CARBONATE
     Indication: Product used for unknown indication
     Dosage: 3 DOSAGE FORM, EVERY DAY (1 TABLET MORNING, NOON AND EVENING)
     Route: 048

REACTIONS (1)
  - Posterior reversible encephalopathy syndrome [Recovering/Resolving]

NARRATIVE: CASE EVENT DATE: 20240417
